FAERS Safety Report 23799407 (Version 1)
Quarter: 2024Q2

REPORT INFORMATION
  Report Type: Spontaneous
  Country: US (occurrence: None)
  Receive Date: 20240428
  Receipt Date: 20240428
  Transmission Date: 20240716
  Serious: Yes (Hospitalization)
  Sender: FDA-Public Use
  Company Number: None

PATIENT
  Age: 30 Year
  Sex: Male
  Weight: 70 kg

DRUGS (1)
  1. DIVALPROEX SODIUM ER [Suspect]
     Active Substance: DIVALPROEX SODIUM
     Dosage: FREQUENCY : AT BEDTIME;?
     Route: 048
     Dates: start: 20230120, end: 20230208

REACTIONS (2)
  - Acne [None]
  - Rash [None]

NARRATIVE: CASE EVENT DATE: 20230208
